FAERS Safety Report 10410622 (Version 8)
Quarter: 2019Q4

REPORT INFORMATION
  Report Type: Report from Study
  Country: US (occurrence: US)
  Receive Date: 20140826
  Receipt Date: 20191017
  Transmission Date: 20200122
  Serious: Yes (Hospitalization)
  Sender: FDA-Public Use
  Company Number: US-PFIZER INC-2014227499

PATIENT
  Age: 9 Year
  Sex: Female
  Weight: 49 kg

DRUGS (3)
  1. DESVENLAFAXINE SUCCINATE MONOHYDRATE [Suspect]
     Active Substance: DESVENLAFAXINE SUCCINATE
     Dosage: 35 MG, 1X/DAY (A.M.)
     Route: 048
     Dates: start: 20140807, end: 20140812
  2. DESVENLAFAXINE SUCCINATE MONOHYDRATE [Suspect]
     Active Substance: DESVENLAFAXINE SUCCINATE
     Dosage: 25 MG, 1X/DAY (AM)
     Route: 048
     Dates: start: 20140814, end: 20140816
  3. DESVENLAFAXINE SUCCINATE MONOHYDRATE [Suspect]
     Active Substance: DESVENLAFAXINE SUCCINATE
     Indication: MAJOR DEPRESSION
     Dosage: 25 MG, 1X/DAY (A.M.)
     Route: 048
     Dates: start: 20140719, end: 20140806

REACTIONS (2)
  - Intentional self-injury [Recovered/Resolved]
  - Hallucination, auditory [Recovered/Resolved]

NARRATIVE: CASE EVENT DATE: 20140810
